FAERS Safety Report 8374439-6 (Version None)
Quarter: 2012Q2

REPORT INFORMATION
  Report Type: 
  Country: None (occurrence: None)
  Receive Date: 20120521
  Receipt Date: 20120507
  Transmission Date: 20120825
  Serious: Yes (Other)
  Sender: FDA-Public Use
  Company Number: BR-JNJFOC-20120208638

PATIENT
  Sex: Female
  Weight: 53 kg

DRUGS (10)
  1. AMYTRIL [Concomitant]
     Route: 065
     Dates: start: 20110101, end: 20111001
  2. PREDNISONE [Concomitant]
     Indication: ANTIINFLAMMATORY THERAPY
     Route: 065
     Dates: start: 20090101, end: 20110101
  3. DIPYRONE TAB [Concomitant]
     Indication: FIBROMYALGIA
     Route: 065
     Dates: start: 20090101
  4. OMEPRAZOLE [Concomitant]
     Indication: ABDOMINAL PAIN UPPER
     Route: 065
     Dates: start: 20090101
  5. ACETAMINOPHEN [Concomitant]
     Indication: FIBROMYALGIA
     Route: 065
     Dates: start: 20090101
  6. ARAVA [Suspect]
     Indication: RHEUMATOID ARTHRITIS
     Route: 065
     Dates: start: 20110101, end: 20111001
  7. REMICADE [Suspect]
     Route: 042
     Dates: start: 20120301
  8. METHOTREXATE [Concomitant]
     Indication: RHEUMATOID ARTHRITIS
     Route: 065
     Dates: start: 20090101
  9. REMICADE [Suspect]
     Indication: RHEUMATOID ARTHRITIS
     Route: 042
     Dates: start: 20061001
  10. REMICADE [Suspect]
     Route: 042
     Dates: start: 20110101

REACTIONS (16)
  - INFLAMMATION [None]
  - PAIN [None]
  - BREAST INFLAMMATION [None]
  - MALAISE [None]
  - DYSPNOEA [None]
  - INCORRECT DRUG ADMINISTRATION DURATION [None]
  - INAPPROPRIATE SCHEDULE OF DRUG ADMINISTRATION [None]
  - DRUG HYPERSENSITIVITY [None]
  - PALPITATIONS [None]
  - INFUSION RELATED REACTION [None]
  - INSOMNIA [None]
  - DRUG INEFFECTIVE [None]
  - GAIT DISTURBANCE [None]
  - WEIGHT INCREASED [None]
  - ABDOMINAL PAIN UPPER [None]
  - GASTROINTESTINAL PAIN [None]
